FAERS Safety Report 16460215 (Version 1)
Quarter: 2019Q2

REPORT INFORMATION
  Report Type: Report from Study
  Country: None (occurrence: AU)
  Receive Date: 20190620
  Receipt Date: 20190620
  Transmission Date: 20190711
  Serious: Yes (Other)
  Sender: FDA-Public Use
  Company Number: AU-BAUSCH-BL-2019-017617

PATIENT
  Age: 4 Year
  Sex: Female

DRUGS (7)
  1. MOMETASONE [Suspect]
     Active Substance: MOMETASONE
     Dosage: SINGLE ADMISSION TO HOSPITAL
     Route: 061
  2. HYDROCORTISONE. [Suspect]
     Active Substance: HYDROCORTISONE
     Indication: DERMATITIS ATOPIC
     Route: 061
  3. METHYLPREDNISOLONE. [Suspect]
     Active Substance: METHYLPREDNISOLONE
     Indication: DERMATITIS ATOPIC
     Dosage: DAILY, APPROXIMATELY 15 G PER WEEK, OFTEN UNDER WET DRESSINGS
     Route: 061
  4. BETAMETHASONE DIPROPIONATE AND CALCIPOTRIOL [Suspect]
     Active Substance: BETAMETHASONE DIPROPIONATE\CALCIPOTRIENE
     Indication: DERMATITIS ATOPIC
     Route: 061
  5. PIMECROLIMUS. [Concomitant]
     Active Substance: PIMECROLIMUS
     Indication: DERMATITIS ATOPIC
     Route: 061
  6. MOMETASONE [Suspect]
     Active Substance: MOMETASONE
     Indication: DERMATITIS ATOPIC
     Dosage: DAILY, APPROXIMATELY 15 G PER WEEK, OFTEN UNDER WET DRESSINGS
     Route: 061
  7. SALBUTAMOL [Concomitant]
     Active Substance: ALBUTEROL
     Indication: ASTHMA

REACTIONS (1)
  - Steroid withdrawal syndrome [Recovering/Resolving]
